FAERS Safety Report 6347534-0 (Version None)
Quarter: 2009Q3

REPORT INFORMATION
  Report Type: 
  Country: None (occurrence: None)
  Receive Date: 20090908
  Receipt Date: 20090908
  Transmission Date: 20100115
  Serious: Yes (Life-Threatening, Hospitalization)
  Sender: FDA-Public Use
  Company Number: None

PATIENT
  Age: 75 Year
  Sex: Male
  Weight: 68.0396 kg

DRUGS (2)
  1. EUFLEXXA 2 ML INJECTABLE [Suspect]
     Indication: MENISCUS LESION
     Dosage: ONE INJECTION 1 TIME FOR 3 WEEKS IV
     Route: 042
     Dates: start: 20090819, end: 20090819
  2. EUFLEXXA 2 ML INJECTABLE [Suspect]
     Indication: OSTEOARTHRITIS
     Dosage: ONE INJECTION 1 TIME FOR 3 WEEKS IV
     Route: 042
     Dates: start: 20090819, end: 20090819

REACTIONS (10)
  - CEREBROVASCULAR ACCIDENT [None]
  - DEPRESSED LEVEL OF CONSCIOUSNESS [None]
  - FACIAL PALSY [None]
  - HEMIPLEGIA [None]
  - HEPATIC CIRRHOSIS [None]
  - HYPERSOMNIA [None]
  - LOSS OF CONSCIOUSNESS [None]
  - MENINGITIS CRYPTOCOCCAL [None]
  - PAIN [None]
  - TRANSMISSION OF AN INFECTIOUS AGENT VIA A MEDICINAL PRODUCT [None]
